FAERS Safety Report 4850065-8 (Version None)
Quarter: 2005Q4

REPORT INFORMATION
  Report Type: 
  Country: None (occurrence: None)
  Receive Date: 20051102
  Receipt Date: 20050726
  Transmission Date: 20060501
  Serious: No
  Sender: FDA-Public Use
  Company Number: 200511493BWH

PATIENT
  Age: 67 Year
  Sex: Male

DRUGS (4)
  1. LEVITRA [Suspect]
     Indication: ERECTILE DYSFUNCTION
     Dosage: 20 MG, ONCE, ORAL
     Route: 048
     Dates: start: 20050722, end: 20050725
  2. LEVITRA [Suspect]
     Indication: ERECTILE DYSFUNCTION
     Dosage: 20 MG, ONCE, ORAL
     Route: 048
     Dates: start: 20050722
  3. BLOOD PRESSURE MEDICATIONS (NOS) [Concomitant]
  4. GOUT MEDICATION [Concomitant]

REACTIONS (3)
  - ERECTILE DYSFUNCTION [None]
  - HEADACHE [None]
  - NASAL CONGESTION [None]
